FAERS Safety Report 8950839 (Version 1)
Quarter: 2012Q4

REPORT INFORMATION
  Report Type: Spontaneous
  Country: US (occurrence: None)
  Receive Date: 20121128
  Receipt Date: 20121128
  Transmission Date: 20130627
  Serious: Yes (Life-Threatening, Other)
  Sender: FDA-Public Use
  Company Number: FK201203513

PATIENT
  Age: 67 Year

DRUGS (2)
  1. MEPIVACAINE [Suspect]
     Indication: NERVE BLOCK
  2. BUPIVACAINE [Suspect]

REACTIONS (3)
  - Respiratory arrest [None]
  - Dyspnoea [None]
  - Abnormal behaviour [None]
